FAERS Safety Report 6331235-9 (Version None)
Quarter: 2009Q3

REPORT INFORMATION
  Report Type: 
  Country: None (occurrence: None)
  Receive Date: 20090827
  Receipt Date: 20090820
  Transmission Date: 20100115
  Serious: Yes (Disabling)
  Sender: FDA-Public Use
  Company Number: GB-MERCK-0908GBR00063

PATIENT
  Age: 50 Year
  Sex: Female

DRUGS (3)
  1. FOSAMAX [Suspect]
     Route: 048
     Dates: start: 20070605, end: 20080826
  2. PAROXETINE [Concomitant]
     Route: 048
     Dates: start: 20030910
  3. PROCYCLIDINE HYDROCHLORIDE [Concomitant]
     Route: 048
     Dates: start: 20021014

REACTIONS (2)
  - ABSCESS [None]
  - NECROSIS [None]
